FAERS Safety Report 18285217 (Version 1)
Quarter: 2020Q3

REPORT INFORMATION
  Report Type: Spontaneous
  Country: US (occurrence: US)
  Receive Date: 20200918
  Receipt Date: 20200918
  Transmission Date: 20201103
  Serious: Yes (Life-Threatening, Hospitalization, Disabling, Other)
  Sender: FDA-Public Use
  Company Number: US-009507513-2009USA005865

PATIENT
  Sex: Female

DRUGS (4)
  1. DIAMOX SEQUELS [Interacting]
     Active Substance: ACETAZOLAMIDE
     Indication: CSF VOLUME INCREASED
  2. NEXPLANON [Suspect]
     Active Substance: ETONOGESTREL
     Indication: CONTRACEPTION
     Dosage: 1 IMPLANT IN ARM
     Route: 059
     Dates: start: 20191001, end: 202005
  3. NEXPLANON [Suspect]
     Active Substance: ETONOGESTREL
     Indication: MENSTRUAL CYCLE MANAGEMENT
  4. DIAMOX SEQUELS [Interacting]
     Active Substance: ACETAZOLAMIDE
     Indication: OPTIC NERVE COMPRESSION
     Dosage: UNK

REACTIONS (4)
  - Drug interaction [Unknown]
  - Product use in unapproved indication [Unknown]
  - Idiopathic intracranial hypertension [Not Recovered/Not Resolved]
  - Blood potassium decreased [Unknown]

NARRATIVE: CASE EVENT DATE: 20191001
